FAERS Safety Report 4960810-9 (Version None)
Quarter: 2006Q1

REPORT INFORMATION
  Report Type: 
  Country: None (occurrence: None)
  Receive Date: 20060331
  Receipt Date: 20060331
  Transmission Date: 20060701
  Serious: Yes (Other)
  Sender: FDA-Public Use
  Company Number: None

PATIENT
  Sex: Female
  Weight: 51.2565 kg

DRUGS (4)
  1. KYTRIL [Suspect]
     Indication: NAUSEA
     Dosage: 1MG IV STAT
     Route: 042
     Dates: start: 20060323
  2. ROCEPHIN [Concomitant]
  3. ADVAIR DISKUS 100/50 [Concomitant]
  4. SINGULAIR [Concomitant]

REACTIONS (3)
  - BLOOD PRESSURE SYSTOLIC DECREASED [None]
  - MIGRAINE [None]
  - VISUAL DISTURBANCE [None]
